FAERS Safety Report 25529127 (Version 1)
Quarter: 2025Q3

REPORT INFORMATION
  Report Type: Spontaneous
  Country: IN (occurrence: IN)
  Receive Date: 20250708
  Receipt Date: 20250708
  Transmission Date: 20251020
  Serious: Yes (Other)
  Sender: MYLAN
  Company Number: IN-MYLANLABS-2025M1056534

PATIENT
  Age: 36 Year
  Sex: Female

DRUGS (24)
  1. MIRTAZAPINE [Suspect]
     Active Substance: MIRTAZAPINE
     Indication: Depression
     Dosage: 15 MILLIGRAM, QD
  2. MIRTAZAPINE [Suspect]
     Active Substance: MIRTAZAPINE
     Dosage: 15 MILLIGRAM, QD
     Route: 065
  3. MIRTAZAPINE [Suspect]
     Active Substance: MIRTAZAPINE
     Dosage: 15 MILLIGRAM, QD
     Route: 065
  4. MIRTAZAPINE [Suspect]
     Active Substance: MIRTAZAPINE
     Dosage: 15 MILLIGRAM, QD
  5. DESVENLAFAXINE [Suspect]
     Active Substance: DESVENLAFAXINE
     Indication: Depression
  6. DESVENLAFAXINE [Suspect]
     Active Substance: DESVENLAFAXINE
  7. DESVENLAFAXINE [Suspect]
     Active Substance: DESVENLAFAXINE
     Route: 065
  8. DESVENLAFAXINE [Suspect]
     Active Substance: DESVENLAFAXINE
     Route: 065
  9. DESVENLAFAXINE [Suspect]
     Active Substance: DESVENLAFAXINE
     Dosage: 100 MILLIGRAM, QD
  10. DESVENLAFAXINE [Suspect]
     Active Substance: DESVENLAFAXINE
     Dosage: 100 MILLIGRAM, QD
  11. DESVENLAFAXINE [Suspect]
     Active Substance: DESVENLAFAXINE
     Dosage: 100 MILLIGRAM, QD
     Route: 065
  12. DESVENLAFAXINE [Suspect]
     Active Substance: DESVENLAFAXINE
     Dosage: 100 MILLIGRAM, QD
     Route: 065
  13. FLUOXETINE [Suspect]
     Active Substance: FLUOXETINE HYDROCHLORIDE
     Indication: Depression
  14. FLUOXETINE [Suspect]
     Active Substance: FLUOXETINE HYDROCHLORIDE
  15. FLUOXETINE [Suspect]
     Active Substance: FLUOXETINE HYDROCHLORIDE
     Route: 065
  16. FLUOXETINE [Suspect]
     Active Substance: FLUOXETINE HYDROCHLORIDE
     Route: 065
  17. FLUOXETINE [Suspect]
     Active Substance: FLUOXETINE HYDROCHLORIDE
  18. FLUOXETINE [Suspect]
     Active Substance: FLUOXETINE HYDROCHLORIDE
  19. FLUOXETINE [Suspect]
     Active Substance: FLUOXETINE HYDROCHLORIDE
     Route: 065
  20. FLUOXETINE [Suspect]
     Active Substance: FLUOXETINE HYDROCHLORIDE
     Route: 065
  21. CLONAZEPAM [Concomitant]
     Active Substance: CLONAZEPAM
     Indication: Insomnia
  22. CLONAZEPAM [Concomitant]
     Active Substance: CLONAZEPAM
     Route: 065
  23. CLONAZEPAM [Concomitant]
     Active Substance: CLONAZEPAM
     Route: 065
  24. CLONAZEPAM [Concomitant]
     Active Substance: CLONAZEPAM

REACTIONS (1)
  - Drug ineffective [Unknown]
